FAERS Safety Report 14372639 (Version 1)
Quarter: 2018Q1

REPORT INFORMATION
  Report Type: Spontaneous
  Country: US (occurrence: US)
  Receive Date: 20180110
  Receipt Date: 20180110
  Transmission Date: 20180509
  Serious: Yes (Other)
  Sender: FDA-Public Use
  Company Number: US-MYLANLABS-2017M1083748

PATIENT
  Age: 60 Year
  Sex: Male

DRUGS (7)
  1. MORPHINE [Suspect]
     Active Substance: MORPHINE
     Indication: GROIN PAIN
     Dosage: A SINGLE-SHOT INTRATHECAL TRIAL VIA PUMP WAS PERFORMED WITH MORPHINE 1 MG.
     Route: 037
  2. OXYCODONE [Concomitant]
     Active Substance: OXYCODONE
     Indication: SCROTAL PAIN
  3. OXYCODONE [Concomitant]
     Active Substance: OXYCODONE
     Indication: GROIN PAIN
     Dosage: 580 MG/DAY
     Route: 065
  4. MORPHINE [Suspect]
     Active Substance: MORPHINE
     Indication: SCROTAL PAIN
  5. LOVENOX [Suspect]
     Active Substance: ENOXAPARIN SODIUM
     Indication: DEEP VEIN THROMBOSIS
     Dosage: UNK
     Route: 065
  6. BUPIVACAINE. [Suspect]
     Active Substance: BUPIVACAINE
     Indication: GROIN PAIN
     Dosage: A SINGLE-SHOT INTRATHECAL TRIAL VIA PUMP WAS PERFORMED WITH BUPIVACAINE 1.5 MG.
     Route: 037
  7. BUPIVACAINE. [Suspect]
     Active Substance: BUPIVACAINE
     Indication: SCROTAL PAIN

REACTIONS (5)
  - Pain in extremity [Unknown]
  - Administration site erythema [Unknown]
  - Subdural haematoma [Unknown]
  - Muscular weakness [Unknown]
  - Administration site swelling [Unknown]
